FAERS Safety Report 10759914 (Version 1)
Quarter: 2015Q1

REPORT INFORMATION
  Report Type: Report from Study
  Country: DE (occurrence: DE)
  Receive Date: 20150203
  Receipt Date: 20150203
  Transmission Date: 20150721
  Serious: Yes (Life-Threatening, Hospitalization)
  Sender: FDA-Public Use
  Company Number: PHHO2010DE13331

PATIENT
  Age: 2 Year
  Sex: Male
  Weight: 16.3 kg

DRUGS (6)
  1. EVEROLIMUS [Suspect]
     Active Substance: EVEROLIMUS
     Indication: ASTROCYTOMA, LOW GRADE
     Dosage: 4.5 MG/M2, QD
     Route: 048
     Dates: start: 20100803
  2. EVEROLIMUS [Suspect]
     Active Substance: EVEROLIMUS
     Dosage: 4.5 MG/M2, QD
     Route: 048
     Dates: start: 20101122, end: 20110104
  3. EVEROLIMUS [Suspect]
     Active Substance: EVEROLIMUS
     Dosage: 4.5 MG/M2, QD
     Route: 048
     Dates: end: 20101118
  4. EVEROLIMUS [Suspect]
     Active Substance: EVEROLIMUS
     Dosage: 4.5 MG/M2, QD
     Route: 048
     Dates: start: 20110413
  5. TIMONIL [Concomitant]
     Active Substance: CARBAMAZEPINE
     Dosage: UNK
     Route: 065
     Dates: start: 201001
  6. CARBAMAZEPINE. [Concomitant]
     Active Substance: CARBAMAZEPINE
     Indication: EPILEPSY
     Dosage: 3.6 ML, UNK
     Route: 065
     Dates: start: 201101

REACTIONS (17)
  - Febrile convulsion [Recovering/Resolving]
  - Bronchopneumonia [Recovered/Resolved]
  - Conjunctivitis [Recovered/Resolved]
  - Upper respiratory tract infection [Recovered/Resolved]
  - Vomiting [Recovered/Resolved]
  - Pyrexia [Recovered/Resolved]
  - Croup infectious [Recovered/Resolved]
  - Laryngitis [Recovered/Resolved]
  - Febrile infection [Recovered/Resolved]
  - Diarrhoea [Recovered/Resolved]
  - Abdominal pain [Recovered/Resolved]
  - Ear infection [Recovered/Resolved]
  - Pneumonia aspiration [Recovered/Resolved]
  - Adenovirus infection [Recovered/Resolved]
  - Gastroenteritis norovirus [Recovered/Resolved]
  - Influenza [Unknown]
  - Bronchitis [Recovered/Resolved]

NARRATIVE: CASE EVENT DATE: 20100828
